FAERS Safety Report 18265464 (Version 1)
Quarter: 2020Q3

REPORT INFORMATION
  Report Type: Other
  Country: US (occurrence: US)
  Receive Date: 20200914
  Receipt Date: 20200914
  Transmission Date: 20201103
  Serious: No
  Sender: FDA-Public Use
  Company Number: US-LEADIANT BIOSCIENCES INC-2020STPI000258

PATIENT
  Sex: Male

DRUGS (12)
  1. CODEINE [Concomitant]
     Active Substance: CODEINE
  2. SMZ?TMP [Concomitant]
     Active Substance: SULFAMETHOXAZOLE\TRIMETHOPRIM
  3. LEVETIRACETAM. [Concomitant]
     Active Substance: LEVETIRACETAM
  4. TEMODAR [Concomitant]
     Active Substance: TEMOZOLOMIDE
  5. PROCHLORPERAZINE. [Concomitant]
     Active Substance: PROCHLORPERAZINE
  6. MATULANE [Suspect]
     Active Substance: PROCARBAZINE HYDROCHLORIDE
     Indication: BRAIN NEOPLASM
     Dosage: 50 MILLIGRAM, 2 CAPSULES FOR 14 DAYS IN EVEING WITH MEAN ON DAYS 8 TO 21
     Route: 048
     Dates: start: 20200528
  7. DEXAMETHASONE. [Concomitant]
     Active Substance: DEXAMETHASONE
  8. KEPPRA [Concomitant]
     Active Substance: LEVETIRACETAM
  9. AMOXICILLIN. [Concomitant]
     Active Substance: AMOXICILLIN
  10. ONDANSETRON [Concomitant]
     Active Substance: ONDANSETRON
  11. PROMETHAZINE [Concomitant]
     Active Substance: PROMETHAZINE HYDROCHLORIDE
  12. TRAZODONE [Concomitant]
     Active Substance: TRAZODONE HYDROCHLORIDE

REACTIONS (1)
  - Nausea [Unknown]
